FAERS Safety Report 6276121-8 (Version None)
Quarter: 2009Q3

REPORT INFORMATION
  Report Type: 
  Country: None (occurrence: None)
  Receive Date: 20090717
  Receipt Date: 20090717
  Transmission Date: 20100115
  Serious: Yes (Hospitalization)
  Sender: FDA-Public Use
  Company Number: None

PATIENT
  Age: 68 Year
  Sex: Male
  Weight: 67.1324 kg

DRUGS (1)
  1. METOPROLOL SUCCINATE EXTENDED RELEASE [Suspect]
     Indication: HEART RATE IRREGULAR
     Dosage: 1 PILL DAILY ORAL DAILY
     Route: 048
     Dates: end: 20090630

REACTIONS (5)
  - GAIT DISTURBANCE [None]
  - HEART RATE DECREASED [None]
  - HYPERHIDROSIS [None]
  - PRODUCT SUBSTITUTION ISSUE [None]
  - VISION BLURRED [None]
